FAERS Safety Report 4333886-X (Version None)
Quarter: 2004Q2

REPORT INFORMATION
  Report Type: 
  Country: None (occurrence: None)
  Receive Date: 20040405
  Receipt Date: 20040405
  Transmission Date: 20050107
  Serious: Yes (Hospitalization)
  Sender: FDA-Public Use
  Company Number: None

PATIENT
  Age: 63 Year
  Sex: Male

DRUGS (7)
  1. FLUTAMIDE [Suspect]
     Indication: PROSTATE CANCER
     Dosage: 250 MG TID ORAL
     Route: 048
     Dates: start: 20040217, end: 20040326
  2. ZOLADEX [Concomitant]
  3. ASPIRIN [Concomitant]
  4. NITRO [Concomitant]
  5. ATENOLOL [Concomitant]
  6. DIOVAN HCT [Concomitant]
  7. LIPITOR [Concomitant]

REACTIONS (2)
  - HYPOAESTHESIA [None]
  - RASH [None]
